FAERS Safety Report 9443313 (Version 1)
Quarter: 2013Q3

REPORT INFORMATION
  Report Type: Spontaneous
  Country: US (occurrence: None)
  Receive Date: 20130802
  Receipt Date: 20130802
  Transmission Date: 20140515
  Serious: Yes (Hospitalization)
  Sender: FDA-Public Use
  Company Number: 140566

PATIENT
  Age: 71 Year
  Sex: Female
  Weight: 58 kg

DRUGS (1)
  1. LEUCOVORIN CALCIUM [Suspect]
     Indication: COLORECTAL CANCER METASTATIC
     Dates: start: 20120525

REACTIONS (21)
  - Pyrexia [None]
  - Cough [None]
  - Dehydration [None]
  - Pulmonary oedema [None]
  - Cholangitis [None]
  - Blood bilirubin increased [None]
  - Toxicity to various agents [None]
  - Ascites [None]
  - Condition aggravated [None]
  - Pleural effusion [None]
  - Atelectasis [None]
  - Hyponatraemia [None]
  - Hyperbilirubinaemia [None]
  - Oedema [None]
  - Haemoglobin decreased [None]
  - Colorectal cancer metastatic [None]
  - Colorectal cancer stage IV [None]
  - Malignant neoplasm progression [None]
  - Diabetes mellitus [None]
  - Hypertension [None]
  - Depression [None]
